FAERS Safety Report 10199699 (Version 1)
Quarter: 2014Q2

REPORT INFORMATION
  Report Type: Spontaneous
  Country: DE (occurrence: DE)
  Receive Date: 20140527
  Receipt Date: 20140527
  Transmission Date: 20141212
  Serious: Yes (Death, Hospitalization)
  Sender: FDA-Public Use
  Company Number: GXKR2014DE002040

PATIENT
  Sex: 0

DRUGS (2)
  1. ACETYLSALICYLIC ACID [Suspect]
     Indication: HEADACHE
     Dosage: 500 MG, UNK
     Route: 048
     Dates: start: 20140514
  2. MARCUMAR [Interacting]
     Indication: ATRIAL FIBRILLATION
     Dosage: AACORDING TO INR
     Route: 048

REACTIONS (2)
  - Cerebral haemorrhage [Fatal]
  - Fall [Fatal]
